FAERS Safety Report 4667309-8 (Version None)
Quarter: 2005Q2

REPORT INFORMATION
  Report Type: 
  Country: None (occurrence: None)
  Receive Date: 20050519
  Receipt Date: 20050519
  Transmission Date: 20051028
  Serious: Yes (Hospitalization)
  Sender: FDA-Public Use
  Company Number: None

PATIENT
  Sex: Female
  Weight: 64.4108 kg

DRUGS (6)
  1. VELCADE [Suspect]
     Indication: DIFFUSE LARGE B-CELL LYMPHOMA
     Dosage: 2.3 NG IV D1 AND D 4
     Route: 042
     Dates: start: 20050322
  2. VELCADE [Suspect]
     Indication: DIFFUSE LARGE B-CELL LYMPHOMA
     Dosage: 2.3 NG IV D1 AND D 4
     Route: 042
     Dates: start: 20050325
  3. VELCADE [Suspect]
     Indication: DIFFUSE LARGE B-CELL LYMPHOMA
     Dosage: 2.3 NG IV D1 AND D 4
     Route: 042
     Dates: start: 20050411
  4. VELCADE [Suspect]
     Indication: DIFFUSE LARGE B-CELL LYMPHOMA
     Dosage: 2.3 NG IV D1 AND D 4
     Route: 042
     Dates: start: 20050414
  5. VELCADE [Suspect]
     Indication: DIFFUSE LARGE B-CELL LYMPHOMA
     Dosage: 2.3 NG IV D1 AND D 4
     Route: 042
     Dates: start: 20050505
  6. VELCADE [Suspect]
     Indication: DIFFUSE LARGE B-CELL LYMPHOMA
     Dosage: 2.3 NG IV D1 AND D 4
     Route: 042
     Dates: start: 20050512

REACTIONS (6)
  - DEHYDRATION [None]
  - DIZZINESS [None]
  - FALL [None]
  - INFECTION [None]
  - ORTHOSTATIC HYPOTENSION [None]
  - SYNCOPE [None]
